FAERS Safety Report 6724251-6 (Version None)
Quarter: 2010Q2

REPORT INFORMATION
  Report Type: 
  Country: None (occurrence: None)
  Receive Date: 20100513
  Receipt Date: 20100510
  Transmission Date: 20101027
  Serious: Yes (Other)
  Sender: FDA-Public Use
  Company Number: US-ELI_LILLY_AND_COMPANY-US201005002605

PATIENT
  Sex: Female

DRUGS (16)
  1. HUMALOG [Suspect]
     Indication: DIABETES MELLITUS
     Dosage: UNK, AS NEEDED
  2. HUMALOG [Suspect]
     Dosage: UNK, AS NEEDED
  3. CYMBALTA [Suspect]
  4. LASIX [Concomitant]
     Dosage: 40 MG, UNK
  5. SYNTHROID [Concomitant]
     Dosage: 175 MG, UNK
  6. LIPITOR [Concomitant]
     Dosage: 40 MG, UNK
  7. INSPRA [Concomitant]
     Dosage: 40 MG, UNK
  8. ASPIRIN [Concomitant]
     Dosage: 81 MG, UNK
  9. CELEBREX [Concomitant]
  10. TOPAMAX [Concomitant]
     Dosage: 100 MG, UNK
  11. COREG [Concomitant]
  12. DYNACIRC [Concomitant]
     Dosage: 5 MG, UNK
  13. ACIPHEX [Concomitant]
  14. DIOVAN [Concomitant]
     Dosage: 2.5 MG, UNK
  15. POTASSIUM [Concomitant]
     Dosage: 20 MEQ, UNK
  16. VITAMINS [Concomitant]

REACTIONS (4)
  - ARTHRITIS [None]
  - BLOOD GLUCOSE DECREASED [None]
  - BLOOD GLUCOSE INCREASED [None]
  - CORONARY ARTERY BYPASS [None]
